FAERS Safety Report 8831375 (Version 2)
Quarter: 2013Q1

REPORT INFORMATION
  Report Type: Report from Study
  Country: JP (occurrence: JP)
  Receive Date: 20121008
  Receipt Date: 20130313
  Transmission Date: 20140127
  Serious: Yes (Hospitalization)
  Sender: FDA-Public Use
  Company Number: JP-VERTEX PHARMACEUTICAL INC.-AE-2012-010948

PATIENT
  Age: 49 Year
  Sex: Female

DRUGS (21)
  1. MP-424 [Suspect]
     Indication: HEPATITIS C
     Dosage: UNK
     Route: 048
     Dates: start: 20120305, end: 20120528
  2. Z-PEGYLATED INTERFERON-2B [Suspect]
     Indication: HEPATITIS C
     Dosage: 60 UNK, UNK
     Route: 058
     Dates: start: 20120725, end: 20120725
  3. Z-PEGYLATED INTERFERON-2B [Suspect]
     Dosage: 60 UNK, 1X/WEEK
     Route: 058
     Dates: start: 20120806, end: 20120813
  4. Z-RIBAVIRIN [Suspect]
     Indication: HEPATITIS C
     Dosage: 600 MG, QD
     Route: 048
     Dates: start: 20120305, end: 20120724
  5. Z-RIBAVIRIN [Suspect]
     Dosage: 200 MG, QD
     Route: 048
     Dates: start: 20120806, end: 20120813
  6. ZOMIG [Concomitant]
     Indication: MIGRAINE
     Route: 048
     Dates: start: 20120213
  7. HYPEN [Concomitant]
     Indication: HEPATITIS C
     Route: 048
     Dates: start: 20120305
  8. ANTEBATE [Concomitant]
     Indication: RASH
     Dates: start: 20120305
  9. ANTEBATE [Concomitant]
     Indication: PYREXIA
  10. JZOLOFT [Concomitant]
     Indication: INSOMNIA
     Route: 048
     Dates: start: 20120604
  11. WYPAX [Concomitant]
     Indication: INSOMNIA
     Route: 048
     Dates: start: 20120723
  12. ROHYPNOL [Concomitant]
     Indication: INSOMNIA
     Route: 048
     Dates: start: 20120702
  13. ROHYPNOL [Concomitant]
     Dates: start: 20120723
  14. RINDERON A [Concomitant]
     Indication: RASH
     Dates: start: 20120723
  15. GLAKAY [Concomitant]
     Indication: ANAEMIA PROPHYLAXIS
     Route: 048
  16. LIVACT [Concomitant]
     Indication: HEPATITIS C
     Route: 048
  17. MARZULENE S [Concomitant]
     Indication: ABDOMINAL DISCOMFORT
     Route: 048
  18. PARIET [Concomitant]
     Indication: ABDOMINAL DISCOMFORT
     Route: 048
  19. GASMOTIN [Concomitant]
     Indication: ABDOMINAL DISCOMFORT
     Route: 048
  20. LENDORMIN [Concomitant]
     Indication: INSOMNIA
     Dosage: UNK
     Route: 048
     Dates: end: 20120610
  21. LENDORMIN [Concomitant]
     Dosage: UNK
     Route: 048
     Dates: start: 20120824, end: 20120903

REACTIONS (1)
  - Rhabdomyolysis [Recovered/Resolved]
